FAERS Safety Report 7572477-4 (Version None)
Quarter: 2011Q2

REPORT INFORMATION
  Report Type: 
  Country: None (occurrence: None)
  Receive Date: 20110625
  Receipt Date: 20110617
  Transmission Date: 20111010
  Serious: Yes (Death, Other)
  Sender: FDA-Public Use
  Company Number: PHHY2011KR54728

PATIENT
  Age: 62 Month

DRUGS (13)
  1. METHOTREXATE [Concomitant]
     Indication: STEM CELL TRANSPLANT
     Dosage: 15 MG/M2, UNK
  2. STEROIDS NOS [Concomitant]
     Dosage: UNK
  3. CISPLATIN [Concomitant]
     Dosage: UNK
  4. RADIOTHERAPY [Concomitant]
     Dosage: UNK
  5. IFOSFAMIDE [Concomitant]
     Dosage: UNK
  6. ETOPOSIDE [Concomitant]
     Dosage: UNK
  7. CARBOPLATIN [Concomitant]
     Dosage: UNK
  8. TOPOTECAN [Concomitant]
     Dosage: UNK
  9. NEUPOGEN [Concomitant]
     Dosage: 5-10 MG/KG ONCE DAILY
  10. LEUCOVORIN CALCIUM [Concomitant]
     Dosage: UNK
  11. CYCLOSPORINE [Suspect]
     Indication: STEM CELL TRANSPLANT
     Dosage: 150-300 NG/ML
  12. DOXORUBICIN HCL [Concomitant]
     Dosage: UNK
  13. CYCLOPHOSPHAMIDE [Concomitant]
     Dosage: UNK

REACTIONS (2)
  - VIRAL MYOCARDITIS [None]
  - ACUTE GRAFT VERSUS HOST DISEASE [None]
